FAERS Safety Report 25751329 (Version 1)
Quarter: 2025Q3

REPORT INFORMATION
  Report Type: Spontaneous
  Country: US (occurrence: None)
  Receive Date: 20250901
  Receipt Date: 20250901
  Transmission Date: 20251021
  Serious: Yes (Hospitalization)
  Sender: FDA-CTU
  Company Number: None

PATIENT
  Sex: Male

DRUGS (13)
  1. SPRAVATO [Suspect]
     Active Substance: ESKETAMINE
     Indication: Major depression
     Dosage: OTHER FREQUENCY : TWICE WEEKLY;?
     Route: 045
     Dates: start: 20250528
  2. FISH OIL [Concomitant]
     Active Substance: FISH OIL
  3. CYMBALTA [Concomitant]
     Active Substance: DULOXETINE HYDROCHLORIDE
  4. AMBIEN [Concomitant]
     Active Substance: ZOLPIDEM TARTRATE
  5. XIGDUO XR [Concomitant]
     Active Substance: DAPAGLIFLOZIN PROPANEDIOL\METFORMIN HYDROCHLORIDE
  6. DUPIXENT [Concomitant]
     Active Substance: DUPILUMAB
  7. CLARITIN [Concomitant]
     Active Substance: LORATADINE
  8. KLONOPIN [Concomitant]
     Active Substance: CLONAZEPAM
  9. VRAYLAR [Concomitant]
     Active Substance: CARIPRAZINE
  10. ROSUVASTATIN [Concomitant]
     Active Substance: ROSUVASTATIN
  11. SPRAVATO NASAL SPRAY (2/KIT) [Concomitant]
  12. FLONASE [Concomitant]
     Active Substance: FLUTICASONE PROPIONATE
  13. TRELEGY ELLIPTA [Concomitant]
     Active Substance: FLUTICASONE FUROATE\UMECLIDINIUM BROMIDE\VILANTEROL TRIFENATATE

REACTIONS (2)
  - Loss of consciousness [None]
  - Cardiac disorder [None]
